FAERS Safety Report 11204101 (Version 2)
Quarter: 2015Q2

REPORT INFORMATION
  Report Type: Spontaneous
  Country: US (occurrence: US)
  Receive Date: 20150619
  Receipt Date: 20150626
  Transmission Date: 20150821
  Serious: Yes (Other)
  Sender: FDA-Public Use
  Company Number: PHEH2015US011546

PATIENT
  Sex: Male

DRUGS (1)
  1. SANDOSTATIN LAR DEPOT [Suspect]
     Active Substance: OCTREOTIDE ACETATE
     Indication: MALABSORPTION
     Dosage: UNK UNK, QMO
     Route: 030

REACTIONS (2)
  - Off label use [Unknown]
  - IVth nerve paralysis [Not Recovered/Not Resolved]
